FAERS Safety Report 5975532-5 (Version None)
Quarter: 2008Q4

REPORT INFORMATION
  Report Type: 
  Country: None (occurrence: None)
  Receive Date: 20081202
  Receipt Date: 20080924
  Transmission Date: 20090506
  Serious: No
  Sender: FDA-Public Use
  Company Number: A0742953A

PATIENT
  Age: 63 Year
  Sex: Female

DRUGS (11)
  1. AMOXICILLIN + CLAVULANATE POTASSIUM [Suspect]
     Indication: ORAL BACTERIAL INFECTION
     Route: 048
     Dates: start: 20080731, end: 20080806
  2. ALBUTEROL [Concomitant]
  3. ASPIRIN [Concomitant]
  4. GABAPENTIN [Concomitant]
     Dosage: 600MG FOUR TIMES PER DAY
  5. PLAQUENIL [Concomitant]
  6. TRIAMTERENE [Concomitant]
  7. VERAPAMIL [Concomitant]
     Dosage: 240MG TWICE PER DAY
  8. WARFARIN SODIUM [Concomitant]
     Dosage: 5MG PER DAY
  9. AMBIEN [Concomitant]
     Dosage: 6.25MG AT NIGHT
  10. VITAMINS [Concomitant]
  11. POTASSIUM CHLORIDE [Concomitant]

REACTIONS (9)
  - ABDOMINAL DISCOMFORT [None]
  - ABDOMINAL PAIN UPPER [None]
  - DIARRHOEA [None]
  - GAIT DISTURBANCE [None]
  - JOINT SWELLING [None]
  - NAUSEA [None]
  - PRODUCT QUALITY ISSUE [None]
  - URINARY INCONTINENCE [None]
  - VOMITING [None]
